FAERS Safety Report 9005989 (Version 3)
Quarter: 2013Q2

REPORT INFORMATION
  Report Type: Spontaneous
  Country: US (occurrence: US)
  Receive Date: 20130109
  Receipt Date: 20130404
  Transmission Date: 20140414
  Serious: Yes (Other)
  Sender: FDA-Public Use
  Company Number: US-PFIZER INC-2013004716

PATIENT
  Age: 46 Year
  Sex: Female

DRUGS (10)
  1. GENOTROPIN [Suspect]
     Indication: HYPOPITUITARISM
     Dosage: 0.3 MG, UNK
     Route: 058
     Dates: start: 20070213
  2. GENOTROPIN [Suspect]
     Indication: GROWTH HORMONE DEFICIENCY
     Dosage: 0.1 MG, UNK
     Route: 058
     Dates: start: 20070214
  3. GENOTROPIN [Suspect]
     Dosage: 0.6 MG, UNK
  4. NOVOLOG [Concomitant]
     Indication: TYPE 1 DIABETES MELLITUS
     Dosage: UNK
  5. CLONAZEPAM [Concomitant]
     Indication: CRANIOCEREBRAL INJURY
     Dosage: 0.5 MG, 1X/DAY, BEDTIME
  6. BUSPIRONE [Concomitant]
     Indication: CRANIOCEREBRAL INJURY
     Dosage: 10 MG, 2X/DAY
  7. GABITRIL [Concomitant]
     Indication: CRANIOCEREBRAL INJURY
     Dosage: 2 MG, 2X/DAY
  8. GUAIFENESIN [Concomitant]
     Indication: HYPERSENSITIVITY
     Dosage: 400 MG, 3X/DAY
  9. ALLEGRA [Concomitant]
     Indication: HYPERSENSITIVITY
     Dosage: 180 MG, 2X/DAY
  10. PREDNISONE [Concomitant]
     Indication: HYPOPITUITARISM
     Dosage: 2-3MG 1X/DAY

REACTIONS (5)
  - Nervous system disorder [Recovered/Resolved]
  - Speech disorder [Recovered/Resolved]
  - Dizziness [Recovered/Resolved]
  - Slow speech [Recovered/Resolved]
  - Chills [Recovered/Resolved]
